FAERS Safety Report 19379682 (Version 1)
Quarter: 2021Q2

REPORT INFORMATION
  Report Type: Spontaneous
  Country: US (occurrence: US)
  Receive Date: 20210607
  Receipt Date: 20210607
  Transmission Date: 20210717
  Serious: No
  Sender: FDA-Public Use
  Company Number: US-TEVA-2021-US-1912963

PATIENT
  Age: 48 Year
  Sex: Female
  Weight: 72.57 kg

DRUGS (4)
  1. ELITRA [Concomitant]
     Indication: MIGRAINE
  2. AJOVY [Suspect]
     Active Substance: FREMANEZUMAB-VFRM
     Indication: MIGRAINE
     Dates: start: 2019
  3. AJOVY [Suspect]
     Active Substance: FREMANEZUMAB-VFRM
     Dates: start: 20210406
  4. FENOX NASAL SPRAY [Concomitant]
     Route: 065

REACTIONS (9)
  - Dry skin [Unknown]
  - Injection site swelling [Unknown]
  - Swelling face [Unknown]
  - Pruritus [Unknown]
  - Skin wrinkling [Unknown]
  - Swelling of eyelid [Unknown]
  - Skin exfoliation [Unknown]
  - Injection site erythema [Unknown]
  - Eye pruritus [Unknown]
